FAERS Safety Report 8047913-X (Version None)
Quarter: 2012Q1

REPORT INFORMATION
  Report Type: 
  Country: None (occurrence: None)
  Receive Date: 20120116
  Receipt Date: 20120106
  Transmission Date: 20120608
  Serious: Yes (Other)
  Sender: FDA-Public Use
  Company Number: US-MPIJNJ-2012-00209

PATIENT

DRUGS (3)
  1. GEMCITABINE [Suspect]
     Indication: NEOPLASM MALIGNANT
     Dosage: 800 MG/M2, CYCLIC
     Route: 042
  2. VELCADE [Suspect]
     Indication: NEOPLASM MALIGNANT
     Dosage: 1.3 MG/M2, UNK
     Route: 040
  3. DOXORUBICIN HCL [Suspect]
     Indication: NEOPLASM MALIGNANT
     Dosage: 40 MG/M2, CYCLIC
     Route: 042

REACTIONS (2)
  - MUCOSAL INFLAMMATION [None]
  - NEUTROPENIA [None]
